FAERS Safety Report 13697801 (Version 2)
Quarter: 2017Q3

REPORT INFORMATION
  Report Type: Spontaneous
  Country: CA (occurrence: CA)
  Receive Date: 20170628
  Receipt Date: 20170803
  Transmission Date: 20171127
  Serious: Yes (Other)
  Sender: FDA-Public Use
  Company Number: CA-PFIZER INC-2017279284

PATIENT
  Age: 58 Year
  Sex: Female

DRUGS (1)
  1. ADVIL [Suspect]
     Active Substance: IBUPROFEN
     Indication: PAIN
     Dosage: 400 MG,  1 DOSE WITH WATER
     Dates: start: 20170626, end: 2017

REACTIONS (6)
  - Product size issue [Unknown]
  - Dysphagia [Unknown]
  - Foreign body in respiratory tract [Unknown]
  - Choking [Recovered/Resolved]
  - Product use complaint [Unknown]
  - Oropharyngeal pain [Recovered/Resolved]

NARRATIVE: CASE EVENT DATE: 2017
